FAERS Safety Report 13690932 (Version 2)
Quarter: 2017Q3

REPORT INFORMATION
  Report Type: Report from Study
  Country: US (occurrence: AR)
  Receive Date: 20170626
  Receipt Date: 20170710
  Transmission Date: 20171127
  Serious: Yes (Hospitalization)
  Sender: FDA-Public Use
  Company Number: US-SUNOVION-2017SUN002744

PATIENT
  Age: 74 Year
  Sex: Female

DRUGS (1)
  1. INDACATEROL [Suspect]
     Active Substance: INDACATEROL
     Indication: CHRONIC OBSTRUCTIVE PULMONARY DISEASE
     Dosage: 1 DF, QD
     Route: 065

REACTIONS (4)
  - Fall [Unknown]
  - Dysgraphia [Recovering/Resolving]
  - Hypokinesia [Recovering/Resolving]
  - Peripheral nerve injury [Unknown]

NARRATIVE: CASE EVENT DATE: 201611
